FAERS Safety Report 21866359 (Version 1)
Quarter: 2023Q1

REPORT INFORMATION
  Report Type: Spontaneous
  Country: US (occurrence: US)
  Receive Date: 20230116
  Receipt Date: 20230116
  Transmission Date: 20230417
  Serious: Yes (Hospitalization, Other)
  Sender: FDA-Public Use
  Company Number: US-PFIZER INC-202300013967

PATIENT
  Age: 25 Year
  Sex: Male

DRUGS (1)
  1. RITUXIMAB [Suspect]
     Active Substance: RITUXIMAB
     Indication: Multiple sclerosis
     Dosage: 1000 MG EVERY SIX MONTHS
     Route: 042

REACTIONS (17)
  - Pyoderma gangrenosum [Recovered/Resolved]
  - Pyrexia [Recovered/Resolved]
  - Urine abnormality [Recovered/Resolved]
  - Diarrhoea [Recovered/Resolved]
  - Abscess limb [Recovered/Resolved]
  - Hydronephrosis [Recovered/Resolved]
  - Debridement [Recovered/Resolved]
  - Transurethral prostatectomy [Recovered/Resolved]
  - Pelvic abscess [Recovered/Resolved]
  - Prostatic abscess [Recovered/Resolved]
  - Urethral abscess [Recovered/Resolved]
  - Renal abscess [Recovered/Resolved]
  - Perinephric abscess [Recovered/Resolved]
  - Abscess limb [Recovered/Resolved]
  - Inflammation [Recovered/Resolved]
  - Leukocytosis [Recovered/Resolved]
  - Off label use [Unknown]
